FAERS Safety Report 25572052 (Version 2)
Quarter: 2025Q3

REPORT INFORMATION
  Report Type: Spontaneous
  Country: CN (occurrence: CN)
  Receive Date: 20250717
  Receipt Date: 20250723
  Transmission Date: 20251021
  Serious: Yes (Hospitalization, Other)
  Sender: PFIZER
  Company Number: CN-PFIZER INC-202500143913

PATIENT
  Age: 2 Year
  Sex: Male
  Weight: 10 kg

DRUGS (2)
  1. ZITHROMAX [Suspect]
     Active Substance: AZITHROMYCIN DIHYDRATE
     Indication: Upper respiratory tract infection
     Dosage: 100 MG, 1X/DAY
     Route: 048
     Dates: start: 202009, end: 202009
  2. ZITHROMAX [Suspect]
     Active Substance: AZITHROMYCIN DIHYDRATE
     Indication: Viral infection

REACTIONS (4)
  - Epilepsy [Unknown]
  - Seizure [Recovered/Resolved]
  - Rash [Recovering/Resolving]
  - Off label use [Unknown]

NARRATIVE: CASE EVENT DATE: 20200901
